FAERS Safety Report 8676089 (Version 2)
Quarter: 2013Q3

REPORT INFORMATION
  Report Type: Spontaneous
  Country: US (occurrence: US)
  Receive Date: 20120720
  Receipt Date: 20130702
  Transmission Date: 20140515
  Serious: Yes (Other)
  Sender: FDA-Public Use
  Company Number: US-ASTRAZENECA-2012SE47670

PATIENT
  Age: 66 Year
  Sex: Male
  Weight: 89.8 kg

DRUGS (8)
  1. LISINOPRIL [Suspect]
     Indication: HYPERTENSION
     Dosage: 20/12.5 MG, DAILY
     Route: 048
     Dates: start: 2005
  2. OMEPRAZOLE [Suspect]
     Indication: HIATUS HERNIA
     Route: 048
  3. OMEPRAZOLE [Suspect]
     Indication: GASTROOESOPHAGEAL REFLUX DISEASE
     Route: 048
  4. CRESTOR [Suspect]
     Indication: PROPHYLAXIS
     Route: 048
     Dates: start: 20120621, end: 20120626
  5. CRESTOR [Suspect]
     Indication: PROPHYLAXIS
     Route: 048
     Dates: start: 201206, end: 201206
  6. ZOCOR [Suspect]
     Indication: PROPHYLAXIS
     Route: 065
     Dates: start: 20120529
  7. ZOCOR [Suspect]
     Indication: PROPHYLAXIS
     Dosage: GENERIC, 20 MG DAILY
     Route: 065
  8. COQ10 [Concomitant]

REACTIONS (11)
  - Cerebrovascular accident [Unknown]
  - Gait disturbance [Unknown]
  - Pain [Unknown]
  - Dysstasia [Unknown]
  - Activities of daily living impaired [Unknown]
  - Musculoskeletal pain [Unknown]
  - Hypertension [Unknown]
  - Muscular weakness [Not Recovered/Not Resolved]
  - Headache [Unknown]
  - Myalgia [Unknown]
  - Arthralgia [Unknown]
